FAERS Safety Report 4315340-4 (Version None)
Quarter: 2004Q1

REPORT INFORMATION
  Report Type: 
  Country: None (occurrence: None)
  Receive Date: 20040309
  Receipt Date: 20040223
  Transmission Date: 20041129
  Serious: Yes (Death)
  Sender: FDA-Public Use
  Company Number: US_0402101020

PATIENT
  Sex: Female

DRUGS (4)
  1. GEMZAR [Suspect]
     Dosage: 800 MG/M2 OTHER
  2. PACLITAXEL [Concomitant]
  3. CARBOPLATIN [Concomitant]
  4. DEXAMETHASONE [Concomitant]

REACTIONS (4)
  - FEBRILE NEUTROPENIA [None]
  - SEPSIS [None]
  - THROMBOCYTOPENIA [None]
  - WOUND ABSCESS [None]
